FAERS Safety Report 15670798 (Version 1)
Quarter: 2018Q4

REPORT INFORMATION
  Report Type: Spontaneous
  Country: US (occurrence: US)
  Receive Date: 20181129
  Receipt Date: 20181129
  Transmission Date: 20190205
  Serious: No
  Sender: FDA-Public Use
  Company Number: US-FRESENIUS MEDICAL CARE RENAL THERAPIES GROUP-FMC-1811-002043

PATIENT
  Sex: Male
  Weight: 102 kg

DRUGS (1)
  1. DELFLEX [Suspect]
     Active Substance: CALCIUM CHLORIDE\DEXTROSE\MAGNESIUM CHLORIDE\SODIUM CHLORIDE\SODIUM LACTATE
     Indication: END STAGE RENAL DISEASE
     Dosage: FOUR CYCLES OF 2500 ML PLUS A FINAL FILL OF 2500 ML AND A DAY TIME EXCHANGE OF 2500 ML FOR A TOTAL T
     Route: 033
     Dates: start: 20160425

REACTIONS (1)
  - Muscle strain [Recovering/Resolving]
